FAERS Safety Report 12187255 (Version 2)
Quarter: 2016Q3

REPORT INFORMATION
  Report Type: Report from Study
  Country: CA (occurrence: CA)
  Receive Date: 20160317
  Receipt Date: 20160823
  Transmission Date: 20161109
  Serious: Yes (Other)
  Sender: FDA-Public Use
  Company Number: CA-ROCHE-1168784

PATIENT
  Age: 71 Year
  Sex: Male
  Weight: 108.9 kg

DRUGS (14)
  1. RITUXAN [Suspect]
     Active Substance: RITUXIMAB
     Indication: RHEUMATOID ARTHRITIS
     Dosage: LAST INFUSION RECEIVED ON 11/MAR/2015
     Route: 042
     Dates: start: 20100914
  2. ACETAMINOPHEN. [Concomitant]
     Active Substance: ACETAMINOPHEN
     Indication: PREMEDICATION
     Route: 048
     Dates: start: 20100914
  3. TYLENOL [Concomitant]
     Active Substance: ACETAMINOPHEN
  4. ACTONEL [Concomitant]
     Active Substance: RISEDRONATE SODIUM
  5. DOMPERIDONE [Concomitant]
     Active Substance: DOMPERIDONE
  6. HYDROCHLOROTHIAZIDE. [Concomitant]
     Active Substance: HYDROCHLOROTHIAZIDE
     Indication: HYPERTENSION
  7. MAALOX (CALCIUM CARBONATE) [Concomitant]
  8. PREDNISONE. [Concomitant]
     Active Substance: PREDNISONE
  9. HYDROCHLOROTHIAZIDE. [Concomitant]
     Active Substance: HYDROCHLOROTHIAZIDE
     Indication: HYPERTENSION
  10. AVAPRO [Concomitant]
     Active Substance: IRBESARTAN
     Indication: BLOOD PRESSURE MEASUREMENT
  11. PANTOLOC [Concomitant]
     Active Substance: PANTOPRAZOLE SODIUM
  12. CODEINE [Concomitant]
     Active Substance: CODEINE
  13. DIPHENHYDRAMINE HCL [Concomitant]
     Active Substance: DIPHENHYDRAMINE HYDROCHLORIDE
     Indication: PREMEDICATION
     Route: 048
     Dates: start: 20100914
  14. METHYLPREDNISOLONE. [Concomitant]
     Active Substance: METHYLPREDNISOLONE
     Indication: PREMEDICATION
     Route: 042
     Dates: start: 20100914

REACTIONS (8)
  - Feeling abnormal [Unknown]
  - Diarrhoea [Recovered/Resolved]
  - Abdominal pain [Recovering/Resolving]
  - Impaired healing [Unknown]
  - Foot deformity [Unknown]
  - Hypotension [Unknown]
  - Rectal adenocarcinoma [Unknown]
  - Influenza [Unknown]

NARRATIVE: CASE EVENT DATE: 20121205
